FAERS Safety Report 12642357 (Version 3)
Quarter: 2016Q3

REPORT INFORMATION
  Report Type: Report from Study
  Country: FR (occurrence: FR)
  Receive Date: 20160810
  Receipt Date: 20160928
  Transmission Date: 20161109
  Serious: Yes (Hospitalization)
  Sender: FDA-Public Use
  Company Number: FR-B.I. PHARMACEUTICALS,INC./RIDGEFIELD-2016-BI-50762BI

PATIENT
  Age: 82 Year
  Sex: Male
  Weight: 95 kg

DRUGS (1)
  1. BIBF 1120 [Suspect]
     Active Substance: NINTEDANIB
     Indication: IDIOPATHIC PULMONARY FIBROSIS
     Dosage: 300 MG
     Route: 048
     Dates: start: 20160707, end: 20160801

REACTIONS (1)
  - Phlebitis [Not Recovered/Not Resolved]

NARRATIVE: CASE EVENT DATE: 20160727
